FAERS Safety Report 6067310-6 (Version None)
Quarter: 2009Q1

REPORT INFORMATION
  Report Type: 
  Country: None (occurrence: None)
  Receive Date: 20090205
  Receipt Date: 20090126
  Transmission Date: 20090719
  Serious: Yes (Hospitalization)
  Sender: FDA-Public Use
  Company Number: US-CELGENEUS-163-21880-09011403

PATIENT
  Sex: Female

DRUGS (11)
  1. REVLIMID [Suspect]
     Indication: MULTIPLE MYELOMA
     Route: 048
     Dates: start: 20080801
  2. DECADRON [Concomitant]
     Indication: DRUG USE FOR UNKNOWN INDICATION
     Route: 065
     Dates: start: 20080801
  3. MELPHALAN [Concomitant]
     Indication: DRUG USE FOR UNKNOWN INDICATION
     Dates: start: 20081007, end: 20081010
  4. PREDNISONE [Concomitant]
     Indication: DRUG USE FOR UNKNOWN INDICATION
     Route: 065
     Dates: start: 20081007, end: 20081010
  5. ACETAMINOPHEN AND HYDROCODONE BITARTRATE [Concomitant]
  6. PROMETHAZINE HCL [Concomitant]
  7. PRILOSEC [Concomitant]
     Indication: DRUG USE FOR UNKNOWN INDICATION
  8. LORAZEPAM [Concomitant]
  9. LIDODERM [Concomitant]
     Route: 061
  10. NITROGLYCERIN [Concomitant]
  11. NYSTATIN [Concomitant]
     Indication: DECUBITUS ULCER
     Route: 061

REACTIONS (10)
  - ANAEMIA [None]
  - ARTHRALGIA [None]
  - CULTURE WOUND POSITIVE [None]
  - DECUBITUS ULCER [None]
  - ENTEROCOCCAL INFECTION [None]
  - ESCHERICHIA INFECTION [None]
  - FATIGUE [None]
  - MUSCULAR WEAKNESS [None]
  - STAPHYLOCOCCAL INFECTION [None]
  - THROMBOCYTOPENIA [None]
